FAERS Safety Report 24806196 (Version 3)
Quarter: 2025Q4

REPORT INFORMATION
  Report Type: Spontaneous
  Country: US (occurrence: US)
  Receive Date: 20250103
  Receipt Date: 20251202
  Transmission Date: 20260118
  Serious: No
  Sender: EISAI
  Company Number: US-Eisai-EC-2025-181669

PATIENT
  Age: 63 Year
  Sex: Male

DRUGS (1)
  1. LEQEMBI [Suspect]
     Active Substance: LECANEMAB-IRMB
     Indication: Dementia Alzheimer^s type
     Dosage: DOSE UNKNOWN
     Route: 042
     Dates: start: 20241001

REACTIONS (4)
  - Eye swelling [Recovered/Resolved]
  - Vision blurred [Recovered/Resolved]
  - Asthenia [Recovered/Resolved]
  - Prostatic specific antigen increased [Unknown]

NARRATIVE: CASE EVENT DATE: 20240101
